FAERS Safety Report 4364803-4 (Version None)
Quarter: 2004Q2

REPORT INFORMATION
  Report Type: 
  Country: None (occurrence: None)
  Receive Date: 20040526
  Receipt Date: 20040206
  Transmission Date: 20050107
  Serious: No
  Sender: FDA-Public Use
  Company Number: US-GLAXOSMITHKLINE-A0497067A

PATIENT
  Age: 41 Year
  Sex: Male

DRUGS (1)
  1. LOTRONEX [Suspect]
     Indication: IRRITABLE BOWEL SYNDROME
     Dosage: 1TAB PER DAY
     Route: 048
     Dates: start: 20031101, end: 20040101

REACTIONS (1)
  - ABDOMINAL PAIN [None]
